FAERS Safety Report 14701344 (Version 14)
Quarter: 2020Q2

REPORT INFORMATION
  Report Type: Spontaneous
  Country: US (occurrence: US)
  Receive Date: 20180330
  Receipt Date: 20200415
  Transmission Date: 20200713
  Serious: Yes (Death, Hospitalization)
  Sender: FDA-Public Use
  Company Number: US-ACTELION-A-NJ2018-168612

PATIENT
  Age: 49 Year
  Sex: Female
  Weight: 72.56 kg

DRUGS (7)
  1. OXYGEN. [Concomitant]
     Active Substance: OXYGEN
  2. LETAIRIS [Concomitant]
     Active Substance: AMBRISENTAN
  3. VELETRI [Suspect]
     Active Substance: EPOPROSTENOL
     Indication: PULMONARY HYPERTENSION
     Dosage: 17.42 NG/KG, PER MIN
     Route: 042
  4. XARELTO [Concomitant]
     Active Substance: RIVAROXABAN
  5. ADCIRCA [Concomitant]
     Active Substance: TADALAFIL
  6. ELIQUIS [Concomitant]
     Active Substance: APIXABAN
  7. VELETRI [Suspect]
     Active Substance: EPOPROSTENOL
     Dosage: 17.42 NG/KG, PER MIN
     Route: 042

REACTIONS (27)
  - Fluid retention [Unknown]
  - Chest pain [Unknown]
  - Ascites [Unknown]
  - HIV infection [Unknown]
  - Death [Fatal]
  - Dyspnoea [Unknown]
  - Oedema peripheral [Unknown]
  - Lung disorder [Unknown]
  - Pulmonary arterial hypertension [Unknown]
  - Aspiration pleural cavity [Unknown]
  - Jugular vein embolism [Unknown]
  - Oedema [Unknown]
  - Pain in extremity [Unknown]
  - Pleural effusion [Unknown]
  - Generalised oedema [Unknown]
  - Chronic left ventricular failure [Unknown]
  - Hepatic cirrhosis [Unknown]
  - Abdominal discomfort [Unknown]
  - Abdominal distension [Unknown]
  - Tachycardia [Unknown]
  - Cardiac ablation [Unknown]
  - Paracentesis [Unknown]
  - Cardiac disorder [Unknown]
  - Jugular vein thrombosis [Unknown]
  - Hypertension [Unknown]
  - Fluid overload [Unknown]
  - Gastric operation [Unknown]

NARRATIVE: CASE EVENT DATE: 20190909
